FAERS Safety Report 4281596-X (Version None)
Quarter: 2004Q1

REPORT INFORMATION
  Report Type: 
  Country: None (occurrence: None)
  Receive Date: 20040128
  Receipt Date: 20040116
  Transmission Date: 20041129
  Serious: Yes (Death, Hospitalization)
  Sender: FDA-Public Use
  Company Number: 2004194867FR

PATIENT
  Age: 78 Year
  Sex: Female

DRUGS (5)
  1. CELEBREX [Suspect]
     Indication: OSTEOARTHRITIS
     Dosage: ORAL
     Route: 048
  2. COVERSYL (PERINDOPRIL) [Concomitant]
  3. DAFLON (DIOSMIN) [Concomitant]
  4. LASILIX [Concomitant]
  5. HYPERIUM (RILMENIDINE) [Concomitant]

REACTIONS (5)
  - ANXIETY [None]
  - CARDIAC FAILURE [None]
  - FEELING ABNORMAL [None]
  - RENAL FAILURE ACUTE [None]
  - VOMITING [None]
